FAERS Safety Report 14652669 (Version 1)
Quarter: 2018Q1

REPORT INFORMATION
  Report Type: Report from Study
  Country: IT (occurrence: IT)
  Receive Date: 20180319
  Receipt Date: 20180319
  Transmission Date: 20180509
  Serious: Yes (Other)
  Sender: FDA-Public Use
  Company Number: IT-ROCHE-2087309

PATIENT

DRUGS (3)
  1. PEG-INTERFERON ALFA 2A [Suspect]
     Active Substance: PEGINTERFERON ALFA-2A
     Indication: MYELOFIBROSIS
  2. PEG-INTERFERON ALFA 2A [Suspect]
     Active Substance: PEGINTERFERON ALFA-2A
     Indication: POLYCYTHAEMIA VERA
     Route: 065
  3. PEG-INTERFERON ALFA 2A [Suspect]
     Active Substance: PEGINTERFERON ALFA-2A
     Indication: ESSENTIAL THROMBOCYTHAEMIA

REACTIONS (8)
  - Thyroiditis [Unknown]
  - Atrial fibrillation [Unknown]
  - Pruritus [Unknown]
  - Depression [Unknown]
  - Pulmonary fibrosis [Unknown]
  - Influenza like illness [Unknown]
  - Hepatic enzyme increased [Unknown]
  - Diarrhoea [Unknown]
